FAERS Safety Report 16474027 (Version 1)
Quarter: 2019Q2

REPORT INFORMATION
  Report Type: Spontaneous
  Country: US (occurrence: US)
  Receive Date: 20190625
  Receipt Date: 20190625
  Transmission Date: 20190711
  Serious: Yes (Hospitalization)
  Sender: FDA-Public Use
  Company Number: US-TEVA-2019-US-1064864

PATIENT
  Age: 34 Year
  Sex: Female

DRUGS (8)
  1. BUPIVACAINE. [Suspect]
     Active Substance: BUPIVACAINE
     Indication: EPIDURAL ANALGESIA
     Dosage: INITIAL BOLUS OF 15 ML OF 0.0625% BUPIVACAINE WITH 2 MG/ML FENTANYL
     Route: 008
  2. BUPIVACAINE. [Suspect]
     Active Substance: BUPIVACAINE
     Dosage: INFUSION AT 10ML/HOUR (MIXTURE WITH FENTANYL)
     Route: 008
  3. FENTANYL. [Suspect]
     Active Substance: FENTANYL
     Dosage: DEMAND BOLUS OF 5ML (CONTAINING MIXTURE OF BUPIVACAINE AND FENTANYL)
     Route: 008
  4. BUPIVACAINE. [Suspect]
     Active Substance: BUPIVACAINE
     Dosage: DEMAND BOLUS OF 5ML (CONTAINING MIXTURE OF BUPIVACAINE AND FENTANYL)
     Route: 008
  5. FENTANYL. [Suspect]
     Active Substance: FENTANYL
     Indication: EPIDURAL ANALGESIA
     Dosage: INITIAL BOLUS OF 15 ML OF 0.0625% BUPIVACAINE WITH 2 MICROG/ML FENTANYL
     Route: 008
  6. FENTANYL. [Suspect]
     Active Substance: FENTANYL
     Dosage: INFUSION AT 10ML/HOUR (MIXTURE WITH BUPIVACAINE)
     Route: 008
  7. BUPROPION. [Suspect]
     Active Substance: BUPROPION
     Indication: DEPRESSION
     Route: 065
  8. LIDOCAINE HYDROCHLORIDE AND EPINEPHRINE BITARTRATE [Suspect]
     Active Substance: EPINEPHRINE BITARTRATE\LIDOCAINE HYDROCHLORIDE
     Indication: EPIDURAL ANALGESIA
     Dosage: 3 ML OF LIDOCAINE 1.5% WITH EPINEPHRINE 1:200,000
     Route: 008

REACTIONS (2)
  - Arrhythmia [Recovered/Resolved]
  - Loss of consciousness [Recovered/Resolved]
